FAERS Safety Report 13753886 (Version 1)
Quarter: 2017Q3

REPORT INFORMATION
  Report Type: Spontaneous
  Country: US (occurrence: US)
  Receive Date: 20170714
  Receipt Date: 20170714
  Transmission Date: 20171127
  Serious: Yes (Hospitalization)
  Sender: FDA-Public Use
  Company Number: None

PATIENT
  Age: 60 Year
  Sex: Female
  Weight: 89.55 kg

DRUGS (7)
  1. CHEMO DRUGS [Concomitant]
     Active Substance: UNSPECIFIED INGREDIENT
  2. MULTIVITAMIN [Concomitant]
     Active Substance: VITAMINS
  3. SENNICOT [Concomitant]
  4. NEULASTA [Suspect]
     Active Substance: PEGFILGRASTIM
     Indication: CHEMOTHERAPY
     Dosage: OTHER STRENGTH:MG;QUANTITY:1 INJECTION(S);OTHER FREQUENCY:24-27HRS P CHEMO;OTHER ROUTE:SQ INJECTION?
     Route: 058
     Dates: start: 20170706
  5. NORCO [Concomitant]
     Active Substance: ACETAMINOPHEN\HYDROCODONE BITARTRATE
  6. ATIVAN [Concomitant]
     Active Substance: LORAZEPAM
  7. ZOFRAN [Concomitant]
     Active Substance: ONDANSETRON HYDROCHLORIDE

REACTIONS (7)
  - Erythema [None]
  - Haemoglobin decreased [None]
  - Chest pain [None]
  - Fear [None]
  - Back pain [None]
  - Stomatitis [None]
  - White blood cell count decreased [None]

NARRATIVE: CASE EVENT DATE: 20170713
